FAERS Safety Report 6173062-1 (Version None)
Quarter: 2009Q2

REPORT INFORMATION
  Report Type: 
  Country: None (occurrence: None)
  Receive Date: 20090428
  Receipt Date: 20090413
  Transmission Date: 20091009
  Serious: Yes (Life-Threatening, Other)
  Sender: FDA-Public Use
  Company Number: ADE2009-0580

PATIENT
  Age: 33 Year
  Sex: Male

DRUGS (3)
  1. ZIDOVUDINE [Suspect]
     Indication: HIV INFECTION
  2. LAMIVUDINE [Suspect]
     Indication: HIV INFECTION
  3. LOPINAVIR [Suspect]
     Indication: HIV INFECTION

REACTIONS (17)
  - BLOOD ALBUMIN DECREASED [None]
  - BLOOD LACTATE DEHYDROGENASE INCREASED [None]
  - BLOOD SODIUM DECREASED [None]
  - BLOOD TRIGLYCERIDES INCREASED [None]
  - CHOLESTASIS [None]
  - COAGULOPATHY [None]
  - CONFUSIONAL STATE [None]
  - CYTOLYTIC HEPATITIS [None]
  - DIZZINESS [None]
  - GINGIVITIS ULCERATIVE [None]
  - HEPATOSPLENOMEGALY [None]
  - HISTOPLASMOSIS [None]
  - LYMPHADENOPATHY [None]
  - PANCYTOPENIA [None]
  - PYREXIA [None]
  - RESPIRATORY RATE INCREASED [None]
  - SERUM FERRITIN INCREASED [None]
